FAERS Safety Report 7949229-6 (Version None)
Quarter: 2011Q4

REPORT INFORMATION
  Report Type: 
  Country: None (occurrence: None)
  Receive Date: 20111130
  Receipt Date: 20111123
  Transmission Date: 20120403
  Serious: Yes (Hospitalization)
  Sender: FDA-Public Use
  Company Number: DE-UCBSA-046441

PATIENT
  Age: 22 Year
  Sex: Male

DRUGS (2)
  1. VIMPAT [Suspect]
  2. OXCARBAZEPINE [Suspect]

REACTIONS (2)
  - LETHARGY [None]
  - ENCEPHALOPATHY [None]
